FAERS Safety Report 13159911 (Version 3)
Quarter: 2020Q1

REPORT INFORMATION
  Report Type: Spontaneous
  Country: JP (occurrence: JP)
  Receive Date: 20170127
  Receipt Date: 20200130
  Transmission Date: 20200409
  Serious: Yes (Hospitalization)
  Sender: FDA-Public Use
  Company Number: JP-BAYER-2016-131390

PATIENT
  Age: 56 Year
  Sex: Male

DRUGS (11)
  1. MAGMITT [Concomitant]
     Active Substance: MAGNESIUM OXIDE
     Dosage: DAILY DOSE 3000 MG
     Route: 048
     Dates: end: 20160703
  2. XOFIGO [Suspect]
     Active Substance: RADIUM RA-223 DICHLORIDE
     Indication: PROSTATE CANCER STAGE IV
     Dosage: 55KBQ/KG, ONCE
     Route: 042
     Dates: start: 20160908, end: 20160908
  3. PROSEXOL [Concomitant]
     Active Substance: ETHINYL ESTRADIOL
     Dosage: DAILY DOSE 1.5 MG
     Route: 048
     Dates: start: 20160615, end: 20161112
  4. CALONAL [Concomitant]
     Active Substance: ACETAMINOPHEN
     Dosage: DAILY DOSE 1200 MG
     Route: 048
     Dates: start: 20150902, end: 20160802
  5. TRAMAL [Concomitant]
     Active Substance: TRAMADOL
     Dosage: DAILY DOSE 25 MG
     Route: 048
     Dates: start: 20150829, end: 20161112
  6. METHYCOBAL [Concomitant]
     Active Substance: METHYLCOBALAMIN
     Dosage: DAILY DOSE 1500 ?G
     Route: 048
     Dates: start: 20151001
  7. DEXAMETHASONE. [Concomitant]
     Active Substance: DEXAMETHASONE
     Dosage: DAILY DOSE 1 MG
     Route: 048
     Dates: start: 20150408
  8. ATARAX-P [Concomitant]
     Active Substance: HYDROXYZINE HYDROCHLORIDE
     Dosage: DAILY DOSE 25 MG
     Route: 048
     Dates: start: 20150829, end: 20161112
  9. XOFIGO [Suspect]
     Active Substance: RADIUM RA-223 DICHLORIDE
     Indication: PROSTATE CANCER STAGE IV
     Dosage: 55KBQ/KG, ONCE
     Route: 042
     Dates: start: 20160621, end: 20160621
  10. XOFIGO [Suspect]
     Active Substance: RADIUM RA-223 DICHLORIDE
     Indication: PROSTATE CANCER STAGE IV
     Dosage: 55KBQ/KG, ONCE
     Route: 042
     Dates: start: 20161005, end: 20161005
  11. XOFIGO [Suspect]
     Active Substance: RADIUM RA-223 DICHLORIDE
     Indication: METASTASES TO BONE
     Dosage: 55KBQ/KG, ONCE
     Route: 042
     Dates: start: 20160803, end: 20160803

REACTIONS (2)
  - Bone pain [Recovered/Resolved]
  - Enterocolitis [Recovered/Resolved]

NARRATIVE: CASE EVENT DATE: 20160622
